FAERS Safety Report 13246222 (Version 1)
Quarter: 2017Q1

REPORT INFORMATION
  Report Type: Report from Study
  Country: US (occurrence: US)
  Receive Date: 20170217
  Receipt Date: 20170217
  Transmission Date: 20170428
  Serious: Yes (Hospitalization, Other)
  Sender: FDA-Public Use
  Company Number: US-PFIZER INC-2017065468

PATIENT
  Age: 62 Year
  Sex: Male

DRUGS (1)
  1. SUTENT [Suspect]
     Active Substance: SUNITINIB MALATE
     Indication: GASTROINTESTINAL STROMAL TUMOUR
     Dosage: 50 MG, CYCLIC (DAILY FOR DAY 1-DAY 21 FOLLOWED)
     Route: 048
     Dates: start: 20150121

REACTIONS (10)
  - Yellow skin [Unknown]
  - Fatigue [Unknown]
  - Dehydration [Unknown]
  - Colitis [Unknown]
  - Diarrhoea [Unknown]
  - Anxiety [Unknown]
  - Rash [Unknown]
  - Mucosal inflammation [Unknown]
  - Thrombocytopenia [Unknown]
  - Vomiting [Unknown]

NARRATIVE: CASE EVENT DATE: 2015
